FAERS Safety Report 8230646-4 (Version None)
Quarter: 2012Q1

REPORT INFORMATION
  Report Type: 
  Country: None (occurrence: None)
  Receive Date: 20120323
  Receipt Date: 20120319
  Transmission Date: 20120608
  Serious: Yes (Other)
  Sender: FDA-Public Use
  Company Number: DE-ASTELLAS-2012EU002110

PATIENT
  Age: 80 Year
  Sex: Female

DRUGS (2)
  1. PROTOPIC [Suspect]
     Dosage: UNK
     Route: 061
     Dates: start: 20110201, end: 20111101
  2. PROTOPIC [Suspect]
     Indication: LICHEN SCLEROSUS
     Dosage: UNK
     Route: 061
     Dates: start: 20090201, end: 20101001

REACTIONS (2)
  - OFF LABEL USE [None]
  - VULVAL CANCER [None]
